FAERS Safety Report 8500820-8 (Version None)
Quarter: 2012Q2

REPORT INFORMATION
  Report Type: 
  Country: None (occurrence: None)
  Receive Date: 20120405
  Receipt Date: 20110228
  Transmission Date: 20120825
  Serious: Yes (Other)
  Sender: FDA-Public Use
  Company Number: PHHY2011US04642

PATIENT
  Age: 79 Year
  Sex: Female
  Weight: 145 kg

DRUGS (4)
  1. COUMADIN [Concomitant]
  2. METOPROLOL TARTRATE [Concomitant]
  3. RECLAST [Suspect]
     Indication: OSTEOPOROSIS
     Dosage: 5 MG, IV INFUSION
     Route: 042
     Dates: start: 20110112, end: 20110112
  4. DILTIAZEM [Concomitant]

REACTIONS (5)
  - DYSPNOEA [None]
  - MUSCULOSKELETAL STIFFNESS [None]
  - NAUSEA [None]
  - DYSSTASIA [None]
  - OEDEMA PERIPHERAL [None]
